FAERS Safety Report 25464331 (Version 1)
Quarter: 2025Q2

REPORT INFORMATION
  Report Type: Spontaneous
  Country: CN (occurrence: CN)
  Receive Date: 20250621
  Receipt Date: 20250621
  Transmission Date: 20250717
  Serious: Yes (Other)
  Sender: ACCORD
  Company Number: CN-MLMSERVICE-20250602-PI532075-00133-1

PATIENT
  Age: 5 Year
  Sex: Female

DRUGS (14)
  1. METHOTREXATE [Suspect]
     Active Substance: METHOTREXATE
     Indication: Prophylaxis
     Route: 037
     Dates: start: 20200128
  2. CYTARABINE [Suspect]
     Active Substance: CYTARABINE
     Indication: Prophylaxis
     Route: 037
     Dates: start: 20200128
  3. VINDESINE SULFATE [Suspect]
     Active Substance: VINDESINE SULFATE
     Indication: B-cell type acute leukaemia
     Dates: start: 20200128, end: 20200222
  4. DEXAMETHASONE [Suspect]
     Active Substance: DEXAMETHASONE
     Indication: B-cell type acute leukaemia
     Dates: start: 20200128, end: 20200222
  5. PEGASPARGASE [Suspect]
     Active Substance: PEGASPARGASE
     Indication: B-cell type acute leukaemia
     Dates: start: 20200128, end: 20200222
  6. EPIRUBICIN [Suspect]
     Active Substance: EPIRUBICIN
     Indication: B-cell type acute leukaemia
     Dates: start: 20200128, end: 20200222
  7. PREDNISONE [Suspect]
     Active Substance: PREDNISONE
     Indication: B-cell type acute leukaemia
     Dates: start: 20200121, end: 20200127
  8. METHOTREXATE [Suspect]
     Active Substance: METHOTREXATE
     Indication: Prophylaxis
     Route: 037
     Dates: start: 20200204
  9. METHOTREXATE [Suspect]
     Active Substance: METHOTREXATE
     Indication: Prophylaxis
     Route: 037
     Dates: start: 20200212
  10. CYTARABINE [Suspect]
     Active Substance: CYTARABINE
     Indication: Prophylaxis
     Route: 037
     Dates: start: 20200204
  11. CYTARABINE [Suspect]
     Active Substance: CYTARABINE
     Indication: Prophylaxis
     Route: 037
     Dates: start: 20200212
  12. DEXAMETHASONE [Suspect]
     Active Substance: DEXAMETHASONE
     Indication: B-cell type acute leukaemia
     Route: 037
     Dates: start: 20200128
  13. DEXAMETHASONE [Suspect]
     Active Substance: DEXAMETHASONE
     Indication: B-cell type acute leukaemia
     Route: 037
     Dates: start: 20200204
  14. DEXAMETHASONE [Suspect]
     Active Substance: DEXAMETHASONE
     Indication: B-cell type acute leukaemia
     Route: 037
     Dates: start: 20200212

REACTIONS (6)
  - Pseudomonas infection [Recovered/Resolved]
  - Pneumonia fungal [Recovered/Resolved]
  - Disseminated aspergillosis [Recovered/Resolved]
  - Fungal skin infection [Unknown]
  - Myelosuppression [Unknown]
  - Central nervous system fungal infection [Recovered/Resolved]

NARRATIVE: CASE EVENT DATE: 20200201
